FAERS Safety Report 5404922-4 (Version None)
Quarter: 2007Q3

REPORT INFORMATION
  Report Type: 
  Country: None (occurrence: None)
  Receive Date: 20070801
  Receipt Date: 20070801
  Transmission Date: 20080115
  Serious: Yes (Other)
  Sender: FDA-Public Use
  Company Number: None

PATIENT
  Age: 56 Year
  Sex: Female

DRUGS (2)
  1. RHOGAM [Suspect]
     Indication: BLOOD INCOMPATIBILITY HAEMOLYTIC ANAEMIA OF NEWBORN
     Dosage: 300 UG 1X IM
     Route: 030
  2. RHOGAM [Suspect]
     Indication: PROPHYLAXIS
     Dosage: 300 UG 1X IM
     Route: 030

REACTIONS (1)
  - METAL POISONING [None]
